FAERS Safety Report 18870671 (Version 2)
Quarter: 2021Q3

REPORT INFORMATION
  Report Type: Spontaneous
  Country: US (occurrence: US)
  Receive Date: 20210210
  Receipt Date: 20210803
  Transmission Date: 20211014
  Serious: Yes (Other)
  Sender: FDA-Public Use
  Company Number: US-ASTRAZENECA-2021A027406

PATIENT
  Age: 56 Year
  Sex: Female
  Weight: 87.1 kg

DRUGS (23)
  1. CLONIDINE HCL [Concomitant]
     Active Substance: CLONIDINE HYDROCHLORIDE
  2. GLIPIZIDE. [Concomitant]
     Active Substance: GLIPIZIDE
  3. METFORMIN [Concomitant]
     Active Substance: METFORMIN HYDROCHLORIDE
  4. RIZATRIPTAN. [Concomitant]
     Active Substance: RIZATRIPTAN
  5. NEXIUM [Suspect]
     Active Substance: ESOMEPRAZOLE MAGNESIUM
     Indication: GASTROOESOPHAGEAL REFLUX DISEASE
     Route: 048
     Dates: start: 2005, end: 2019
  6. CIPROFLOXACIN. [Concomitant]
     Active Substance: CIPROFLOXACIN
  7. CYMBALTA [Concomitant]
     Active Substance: DULOXETINE HYDROCHLORIDE
  8. SIMVASTATIN. [Concomitant]
     Active Substance: SIMVASTATIN
  9. PROTONIX [Suspect]
     Active Substance: PANTOPRAZOLE SODIUM
     Indication: GASTROOESOPHAGEAL REFLUX DISEASE
     Route: 065
     Dates: start: 2007, end: 2019
  10. MORPHINE SULFATE. [Concomitant]
     Active Substance: MORPHINE SULFATE
  11. FAMOTIDINE. [Concomitant]
     Active Substance: FAMOTIDINE
  12. OMEPRAZOLE. [Suspect]
     Active Substance: OMEPRAZOLE
     Indication: GASTROOESOPHAGEAL REFLUX DISEASE
     Route: 065
     Dates: end: 2020
  13. PROTONIX [Suspect]
     Active Substance: PANTOPRAZOLE SODIUM
     Indication: GASTROOESOPHAGEAL REFLUX DISEASE
     Dosage: GENERIC
     Route: 065
  14. FUROSEMIDE. [Concomitant]
     Active Substance: FUROSEMIDE
  15. MULTIVITAMIN [Concomitant]
     Active Substance: VITAMINS
  16. ZANTAC [Concomitant]
     Active Substance: RANITIDINE HYDROCHLORIDE
  17. AMITRIPTYLINE HCL [Concomitant]
     Active Substance: AMITRIPTYLINE
  18. LATUDA [Concomitant]
     Active Substance: LURASIDONE HYDROCHLORIDE
  19. ONDASETRON [Concomitant]
     Active Substance: ONDANSETRON
  20. LORAZEPAM. [Concomitant]
     Active Substance: LORAZEPAM
  21. NEXIUM [Suspect]
     Active Substance: ESOMEPRAZOLE MAGNESIUM
     Indication: GASTROOESOPHAGEAL REFLUX DISEASE
     Route: 048
     Dates: start: 2007, end: 2019
  22. NEXIUM [Suspect]
     Active Substance: ESOMEPRAZOLE MAGNESIUM
     Indication: GASTROOESOPHAGEAL REFLUX DISEASE
     Dosage: GENERIC
     Route: 048
     Dates: start: 2015, end: 2016
  23. LITHIUM. [Concomitant]
     Active Substance: LITHIUM
     Indication: MENTAL DISABILITY

REACTIONS (5)
  - Nephrogenic anaemia [Unknown]
  - Gastrooesophageal reflux disease [Not Recovered/Not Resolved]
  - Tubulointerstitial nephritis [Unknown]
  - Hyperparathyroidism secondary [Unknown]
  - Chronic kidney disease [Not Recovered/Not Resolved]

NARRATIVE: CASE EVENT DATE: 2010
